FAERS Safety Report 10589576 (Version 1)
Quarter: 2014Q4

REPORT INFORMATION
  Report Type: Spontaneous
  Country: NL (occurrence: NL)
  Receive Date: 20141118
  Receipt Date: 20141118
  Transmission Date: 20150529
  Serious: Yes (Death, Other)
  Sender: FDA-Public Use
  Company Number: NL-CIPLA LTD.-2014NL01877

PATIENT
  Age: 85 Year

DRUGS (2)
  1. BENZODIAZEPINE [Suspect]
     Active Substance: BENZODIAZEPINE
     Dosage: NON TOXIC CONCENTRATION
  2. CITALOPRAM [Suspect]
     Active Substance: CITALOPRAM HYDROBROMIDE
     Dosage: UNK

REACTIONS (3)
  - Overdose [Fatal]
  - Tachycardia [Unknown]
  - Respiratory arrest [Fatal]
